FAERS Safety Report 6436489-6 (Version None)
Quarter: 2009Q4

REPORT INFORMATION
  Report Type: 
  Country: None (occurrence: None)
  Receive Date: 20091110
  Receipt Date: 20080307
  Transmission Date: 20100525
  Serious: No
  Sender: FDA-Public Use
  Company Number: AEUSA200800055

PATIENT
  Age: 35 Year
  Sex: Female

DRUGS (1)
  1. IMMUNE GLOBULIN (HUMAN) [Suspect]
     Indication: LICHEN MYXOEDEMATOSUS
     Dosage: 2 G/KG; IV
     Route: 042

REACTIONS (6)
  - DRUG EXPOSURE DURING PREGNANCY [None]
  - HEADACHE [None]
  - INFUSION RELATED REACTION [None]
  - LEUKOPENIA [None]
  - MYALGIA [None]
  - PREGNANCY [None]
